FAERS Safety Report 7908469-2 (Version None)
Quarter: 2011Q4

REPORT INFORMATION
  Report Type: 
  Country: None (occurrence: None)
  Receive Date: 20111111
  Receipt Date: 20111102
  Transmission Date: 20120403
  Serious: Yes (Death, Hospitalization)
  Sender: FDA-Public Use
  Company Number: FR-JNJFOC-20110710586

PATIENT
  Sex: Male
  Weight: 70 kg

DRUGS (4)
  1. RISPERDAL [Suspect]
     Indication: IMPULSIVE BEHAVIOUR
     Route: 048
     Dates: start: 20101026, end: 20101227
  2. RISPERDAL [Suspect]
     Indication: AGGRESSION
     Route: 048
     Dates: start: 20101026, end: 20101227
  3. KEPPRA [Suspect]
     Indication: EPILEPSY
     Route: 048
     Dates: start: 20101001, end: 20101227
  4. RISPERDAL [Suspect]
     Indication: AFFECTIVE DISORDER
     Route: 048
     Dates: start: 20101026, end: 20101227

REACTIONS (4)
  - EPILEPSY [None]
  - CARDIO-RESPIRATORY ARREST [None]
  - AGGRESSION [None]
  - TREATMENT NONCOMPLIANCE [None]
